FAERS Safety Report 18376169 (Version 1)
Quarter: 2020Q4

REPORT INFORMATION
  Report Type: Spontaneous
  Country: US (occurrence: US)
  Receive Date: 20201013
  Receipt Date: 20201013
  Transmission Date: 20210114
  Serious: No
  Sender: FDA-Public Use
  Company Number: US-TEVA-2020-US-1837099

PATIENT
  Sex: Male

DRUGS (2)
  1. METHAMPHETAMINE [Suspect]
     Active Substance: METHAMPHETAMINE
     Route: 065
  2. ACAMPROSATE CALCIUM. [Suspect]
     Active Substance: ACAMPROSATE CALCIUM
     Route: 065

REACTIONS (1)
  - Drug screen positive [Unknown]
